FAERS Safety Report 7629174-6 (Version None)
Quarter: 2011Q3

REPORT INFORMATION
  Report Type: 
  Country: None (occurrence: None)
  Receive Date: 20110722
  Receipt Date: 20110711
  Transmission Date: 20111222
  Serious: Yes (Hospitalization, Other)
  Sender: FDA-Public Use
  Company Number: PHFR2010GB06117

PATIENT
  Sex: Male

DRUGS (3)
  1. CLOZAPINE [Suspect]
     Route: 048
     Dates: start: 20071130
  2. CLOZAPINE [Suspect]
     Indication: SCHIZOPHRENIA
     Route: 048
     Dates: start: 19970101
  3. CLOZAPINE [Suspect]
     Route: 048
     Dates: start: 20071130

REACTIONS (5)
  - LIVER FUNCTION TEST ABNORMAL [None]
  - HEPATITIS C [None]
  - MALAISE [None]
  - TUBERCULOSIS [None]
  - CHEST DISCOMFORT [None]
